FAERS Safety Report 5327882-3 (Version None)
Quarter: 2007Q2

REPORT INFORMATION
  Report Type: 
  Country: None (occurrence: None)
  Receive Date: 20070517
  Receipt Date: 20070508
  Transmission Date: 20071010
  Serious: Yes (Other)
  Sender: FDA-Public Use
  Company Number: US-PFIZER INC-2007010620

PATIENT
  Sex: Female
  Weight: 143.8 kg

DRUGS (23)
  1. CHANTIX [Suspect]
     Indication: SMOKING CESSATION THERAPY
  2. FENTANYL [Interacting]
     Indication: PAIN
  3. TRAMADOL HCL [Interacting]
     Indication: PAIN
  4. KLONOPIN [Interacting]
     Indication: ANXIETY
  5. KLONOPIN [Interacting]
     Indication: PANIC ATTACK
  6. LAMICTAL [Interacting]
     Indication: AFFECTIVE DISORDER
  7. LAMICTAL [Interacting]
     Indication: BIPOLAR DISORDER
  8. CYMBALTA [Interacting]
     Indication: DEPRESSION
  9. NEXIUM [Concomitant]
  10. ALL OTHER THERAPEUTIC PRODUCTS [Concomitant]
     Indication: OSTEOPOROSIS
  11. ALL OTHER THERAPEUTIC PRODUCTS [Concomitant]
     Indication: ARTHRITIS
  12. ALL OTHER THERAPEUTIC PRODUCTS [Concomitant]
     Indication: MENOPAUSE
  13. VESICARE [Concomitant]
     Indication: HYPERTONIC BLADDER
  14. ELMIRON [Concomitant]
     Indication: CYSTITIS INTERSTITIAL
  15. NORVASC [Concomitant]
  16. MINOCYCLINE HCL [Concomitant]
  17. PREMARIN [Concomitant]
  18. LASIX [Concomitant]
  19. PREVACID [Concomitant]
  20. POTASSIUM ACETATE [Concomitant]
  21. DICLOFENAC [Concomitant]
  22. MISOPROSTOL [Concomitant]
  23. LEVAQUIN [Concomitant]

REACTIONS (5)
  - ANXIETY [None]
  - DISSOCIATION [None]
  - DRUG INTERACTION [None]
  - PARANOIA [None]
  - SOMNOLENCE [None]
